FAERS Safety Report 13247819 (Version 1)
Quarter: 2017Q1

REPORT INFORMATION
  Report Type: Spontaneous
  Country: SE (occurrence: SE)
  Receive Date: 20170217
  Receipt Date: 20170217
  Transmission Date: 20170428
  Serious: Yes (Hospitalization, Other)
  Sender: FDA-Public Use
  Company Number: SE-APOPHARMA USA, INC.-2017AP007079

PATIENT
  Age: 68 Year
  Sex: Male

DRUGS (2)
  1. ALKERAN [Suspect]
     Active Substance: MELPHALAN
     Indication: METASTASES TO LIVER
     Dosage: 1 MG/KG, OTHER
     Route: 050
     Dates: start: 20101129
  2. TRIBONAT [Concomitant]
     Indication: ACIDOSIS
     Dosage: 100 ML, UNK
     Route: 050

REACTIONS (1)
  - Duodenal ulcer perforation [Unknown]
